FAERS Safety Report 21956937 (Version 1)
Quarter: 2023Q1

REPORT INFORMATION
  Report Type: Spontaneous
  Country: RU (occurrence: RU)
  Receive Date: 20230206
  Receipt Date: 20230206
  Transmission Date: 20230417
  Serious: Yes (Hospitalization, Other)
  Sender: FDA-Public Use
  Company Number: RU-BAYER-2023P006075

PATIENT
  Age: 51 Year
  Sex: Female

DRUGS (1)
  1. MIRENA [Suspect]
     Active Substance: LEVONORGESTREL
     Indication: Heavy menstrual bleeding
     Dosage: 20?G/DAY
     Route: 015
     Dates: start: 2021

REACTIONS (5)
  - Genital haemorrhage [None]
  - Adenocarcinoma [None]
  - Heavy menstrual bleeding [None]
  - Medical device discomfort [None]
  - Device dislocation [None]

NARRATIVE: CASE EVENT DATE: 20220801
